FAERS Safety Report 5132525-8 (Version None)
Quarter: 2006Q4

REPORT INFORMATION
  Report Type: 
  Country: None (occurrence: None)
  Receive Date: 20061023
  Receipt Date: 20061012
  Transmission Date: 20070319
  Serious: Yes (Other)
  Sender: FDA-Public Use
  Company Number: DE-AMGEN-UK196930

PATIENT
  Sex: Male

DRUGS (2)
  1. PALIFERMIN [Suspect]
     Indication: MUCOSAL INFLAMMATION
     Route: 040
     Dates: end: 20050101
  2. PALIFERMIN - PLACEBO [Suspect]
     Indication: MUCOSAL INFLAMMATION
     Route: 040
     Dates: end: 20050101

REACTIONS (1)
  - OEDEMA MUCOSAL [None]
